FAERS Safety Report 5817696-X (Version None)
Quarter: 2008Q3

REPORT INFORMATION
  Report Type: 
  Country: None (occurrence: None)
  Receive Date: 20080722
  Receipt Date: 20080709
  Transmission Date: 20090109
  Serious: Yes (Other)
  Sender: FDA-Public Use
  Company Number: PHHY2008JP11801

PATIENT
  Sex: Male

DRUGS (11)
  1. ZOMETA [Suspect]
     Indication: METASTASES TO BONE
     Dosage: 4 MG, UNK
     Route: 042
     Dates: start: 20070608, end: 20080606
  2. SUMIFERON [Concomitant]
     Dosage: 300 DF, UNK
     Route: 058
     Dates: start: 20070608
  3. LORCAM [Concomitant]
     Indication: BONE PAIN
     Dosage: 12 MG, UNK
     Route: 048
  4. CARDENALIN [Concomitant]
     Indication: HYPERTENSION
     Dosage: 4 MG, UNK
     Route: 048
  5. ADALAT [Concomitant]
     Indication: HYPERTENSION
     Dosage: 60 MG, UNK
     Route: 048
  6. CAPTOPRIL [Concomitant]
     Indication: HYPERTENSION
     Dosage: 37.5 MG, UNK
     Route: 048
  7. MARZULENE S [Concomitant]
     Indication: GASTRITIS
     Dosage: 1.5 G, UNK
     Route: 048
  8. CALCIUM CARBONATE [Concomitant]
     Indication: HYPOCALCAEMIA
     Dosage: 4500 MG, UNK
     Route: 048
  9. FAMOTIDINE [Concomitant]
     Indication: GASTRITIS
     Dosage: 20 MG, UNK
     Route: 048
  10. PURSENNID [Concomitant]
     Indication: CONSTIPATION
     Dosage: 24 MG, UNK
     Route: 048
  11. MOBIC [Concomitant]
     Indication: BONE PAIN
     Route: 048

REACTIONS (4)
  - BONE DISORDER [None]
  - NEPHRECTOMY [None]
  - OSTEONECROSIS [None]
  - PAIN IN JAW [None]
